FAERS Safety Report 5498478-8 (Version None)
Quarter: 2007Q4

REPORT INFORMATION
  Report Type: 
  Country: None (occurrence: None)
  Receive Date: 20071025
  Receipt Date: 20071025
  Transmission Date: 20080405
  Serious: Yes (Hospitalization)
  Sender: FDA-Public Use
  Company Number: None

PATIENT
  Age: 21 Year
  Sex: Male
  Weight: 58.5 kg

DRUGS (2)
  1. BACLOFEN [Suspect]
     Indication: MUSCLE SPASTICITY
     Dosage: 80 MG QID PO 20 MG QID PO
     Route: 048
     Dates: start: 20070701, end: 20071016
  2. BACLOFEN [Suspect]
     Indication: MUSCLE SPASTICITY
     Dosage: 80 MG QID PO 20 MG QID PO
     Route: 048
     Dates: start: 20071016, end: 20071023

REACTIONS (5)
  - CONFUSIONAL STATE [None]
  - HALLUCINATION [None]
  - INCORRECT DOSE ADMINISTERED [None]
  - MEDICATION ERROR [None]
  - PYREXIA [None]
